FAERS Safety Report 16494172 (Version 2)
Quarter: 2019Q3

REPORT INFORMATION
  Report Type: Spontaneous
  Country: US (occurrence: US)
  Receive Date: 20190628
  Receipt Date: 20190708
  Transmission Date: 20191004
  Serious: No
  Sender: FDA-Public Use
  Company Number: US-SA-2019SA170460

PATIENT
  Age: 72 Year
  Sex: Male

DRUGS (1)
  1. LANTUS SOLOSTAR [Suspect]
     Active Substance: INSULIN GLARGINE
     Indication: TYPE 2 DIABETES MELLITUS
     Dosage: UNK, BID
     Route: 065

REACTIONS (4)
  - Blood glucose increased [Unknown]
  - Inappropriate schedule of product administration [Unknown]
  - Product dose omission [Unknown]
  - Therapeutic response decreased [Unknown]
